FAERS Safety Report 9110174 (Version 2)
Quarter: 2013Q1

REPORT INFORMATION
  Report Type: Spontaneous
  Country: IT (occurrence: IT)
  Receive Date: 20130222
  Receipt Date: 20130228
  Transmission Date: 20140127
  Serious: Yes (Hospitalization)
  Sender: FDA-Public Use
  Company Number: IT-RANBAXY-2013R1-65407

PATIENT
  Age: 57 Year
  Sex: Female
  Weight: 55 kg

DRUGS (1)
  1. PANTOPRAZOLE [Suspect]
     Indication: PROPHYLAXIS
     Dosage: 1 SINGLE DOSE ADMINISTERED
     Route: 048
     Dates: start: 20121006, end: 20121006

REACTIONS (2)
  - Hypersensitivity [Recovered/Resolved]
  - Apnoea [Recovered/Resolved]
